FAERS Safety Report 20192194 (Version 1)
Quarter: 2021Q4

REPORT INFORMATION
  Report Type: Spontaneous
  Country: US (occurrence: US)
  Receive Date: 20211216
  Receipt Date: 20211216
  Transmission Date: 20220304
  Serious: No
  Sender: FDA-Public Use
  Company Number: US-AMGEN-USASP2021194959

PATIENT
  Age: 60 Year
  Sex: Male

DRUGS (2)
  1. REPATHA [Suspect]
     Active Substance: EVOLOCUMAB
     Indication: Hypercholesterolaemia
     Dosage: 140 MILLIGRAM, Q2WK
     Route: 065
  2. TRULICITY [Concomitant]
     Active Substance: DULAGLUTIDE
     Indication: Diabetes mellitus
     Dosage: UNK

REACTIONS (6)
  - Accidental exposure to product [Unknown]
  - Wrong technique in product usage process [Unknown]
  - Incorrect disposal of product [Unknown]
  - Drug dose omission by device [Unknown]
  - Injection site urticaria [Unknown]
  - Injection site pain [Unknown]

NARRATIVE: CASE EVENT DATE: 20211204
